FAERS Safety Report 12565628 (Version 2)
Quarter: 2017Q3

REPORT INFORMATION
  Report Type: Spontaneous
  Country: US (occurrence: US)
  Receive Date: 20160718
  Receipt Date: 20170720
  Transmission Date: 20171127
  Serious: No
  Sender: FDA-Public Use
  Company Number: US-BAUSCH-BL-2016-003238

PATIENT
  Age: 68 Year
  Sex: Male
  Weight: 84.9 kg

DRUGS (1)
  1. BESIVANCE [Suspect]
     Active Substance: BESIFLOXACIN
     Indication: CONJUNCTIVITIS BACTERIAL
     Route: 047
     Dates: start: 20160201

REACTIONS (4)
  - Product dropper issue [Unknown]
  - Product physical consistency issue [Unknown]
  - Cough [Not Recovered/Not Resolved]
  - Eye discharge [Not Recovered/Not Resolved]

NARRATIVE: CASE EVENT DATE: 201602
